FAERS Safety Report 23517192 (Version 1)
Quarter: 2024Q1

REPORT INFORMATION
  Report Type: Report from Study
  Country: CA (occurrence: CA)
  Receive Date: 20240213
  Receipt Date: 20240213
  Transmission Date: 20240409
  Serious: Yes (Other)
  Sender: FDA-Public Use
  Company Number: CA-AMGEN-CANSL2024025996

PATIENT
  Age: 63 Year
  Sex: Male

DRUGS (1)
  1. AVSOLA [Suspect]
     Active Substance: INFLIXIMAB-AXXQ
     Indication: Crohn^s disease
     Dosage: 600 MILLIGRAM, Q6WK
     Route: 065
     Dates: start: 20220113, end: 20230701

REACTIONS (4)
  - Crohn^s disease [Unknown]
  - Clostridium difficile infection [Unknown]
  - Salmonellosis [Unknown]
  - Off label use [Unknown]

NARRATIVE: CASE EVENT DATE: 20220113
